FAERS Safety Report 5519751-0 (Version None)
Quarter: 2007Q4

REPORT INFORMATION
  Report Type: 
  Country: None (occurrence: None)
  Receive Date: 20071116
  Receipt Date: 20070814
  Transmission Date: 20080405
  Serious: No
  Sender: FDA-Public Use
  Company Number: A0668136A

PATIENT
  Age: 81 Year
  Sex: Female

DRUGS (10)
  1. COREG CR [Suspect]
     Indication: HYPERTENSION
     Dosage: 40MG PER DAY
     Route: 048
     Dates: start: 20070401
  2. ENSURE PLUS [Suspect]
  3. BENICAR [Concomitant]
  4. CRESTOR [Concomitant]
  5. LEVOTHYROXINE SODIUM [Concomitant]
  6. VITAMINS [Concomitant]
  7. CALCIUM [Concomitant]
  8. ANACIN [Concomitant]
  9. GLUCOSAMINE/CHONDROITIN [Concomitant]
  10. NSAIDS [Concomitant]

REACTIONS (6)
  - DIZZINESS [None]
  - FATIGUE [None]
  - FEELING ABNORMAL [None]
  - MUSCULOSKELETAL STIFFNESS [None]
  - NAUSEA [None]
  - NECK PAIN [None]
